FAERS Safety Report 6789834-6 (Version None)
Quarter: 2010Q2

REPORT INFORMATION
  Report Type: 
  Country: None (occurrence: None)
  Receive Date: 20100624
  Receipt Date: 20100611
  Transmission Date: 20101027
  Serious: Yes (Other)
  Sender: FDA-Public Use
  Company Number: PHHY2010JP36127

PATIENT
  Age: 78 Year
  Sex: Male

DRUGS (2)
  1. FLUVASTATIN [Suspect]
     Dosage: UNK
     Route: 048
     Dates: start: 20020901, end: 20040701
  2. FLUVASTATIN [Suspect]
     Dosage: UNK
     Route: 048
     Dates: start: 20050101

REACTIONS (4)
  - EOSINOPHILIC PNEUMONIA [None]
  - ERYTHEMA ANNULARE [None]
  - PYREXIA [None]
  - RASH [None]
